FAERS Safety Report 13261199 (Version 2)
Quarter: 2017Q2

REPORT INFORMATION
  Report Type: Spontaneous
  Country: US (occurrence: US)
  Receive Date: 20170222
  Receipt Date: 20170613
  Transmission Date: 20170830
  Serious: Yes (Hospitalization)
  Sender: FDA-Public Use
  Company Number: US-BIOMARINAP-US-2017-112870

PATIENT
  Age: 1 Year
  Sex: Male

DRUGS (1)
  1. ALDURAZYME [Suspect]
     Active Substance: LARONIDASE
     Indication: MUCOPOLYSACCHARIDOSIS I
     Dosage: UNK
     Route: 041
     Dates: start: 20161007

REACTIONS (4)
  - Device related infection [Recovering/Resolving]
  - Pericardial effusion [Recovering/Resolving]
  - Pyrexia [Recovering/Resolving]
  - Bone marrow transplant rejection [Recovering/Resolving]

NARRATIVE: CASE EVENT DATE: 20170206
